FAERS Safety Report 9816979 (Version 2)
Quarter: 2014Q1

REPORT INFORMATION
  Report Type: Spontaneous
  Country: CA (occurrence: CA)
  Receive Date: 20140114
  Receipt Date: 20140227
  Transmission Date: 20141002
  Serious: Yes (Life-Threatening, Hospitalization, Other)
  Sender: FDA-Public Use
  Company Number: CA-PFIZER INC-2014004667

PATIENT
  Age: 77 Year
  Sex: Male
  Weight: 77 kg

DRUGS (2)
  1. TORISEL [Suspect]
     Indication: RENAL CANCER
     Dosage: 25 MG, WEEKLY
     Route: 042
     Dates: start: 20131205, end: 20140102
  2. TORISEL [Suspect]
     Dosage: 20 MG, WEEKLY (1 DOSE RECEIVED)

REACTIONS (3)
  - Renal failure acute [Not Recovered/Not Resolved]
  - Platelet disorder [Unknown]
  - Fatigue [Unknown]
